FAERS Safety Report 7747375-3 (Version None)
Quarter: 2011Q3

REPORT INFORMATION
  Report Type: 
  Country: None (occurrence: None)
  Receive Date: 20110913
  Receipt Date: 20110906
  Transmission Date: 20111222
  Serious: Yes (Other)
  Sender: FDA-Public Use
  Company Number: US-GLAXOSMITHKLINE-A0943450A

PATIENT
  Age: 38 Year
  Sex: Female

DRUGS (2)
  1. ATIVAN [Concomitant]
  2. VALTREX [Suspect]
     Indication: GENITAL HERPES
     Dosage: 1G PER DAY
     Route: 048

REACTIONS (3)
  - SELF-INJURIOUS IDEATION [None]
  - THOUGHT INSERTION [None]
  - VIOLENCE-RELATED SYMPTOM [None]
